FAERS Safety Report 11725767 (Version 1)
Quarter: 2015Q4

REPORT INFORMATION
  Report Type: Spontaneous
  Country: US (occurrence: US)
  Receive Date: 20151110
  Receipt Date: 20151110
  Transmission Date: 20160304
  Serious: No
  Sender: FDA-Public Use
  Company Number: US-ELI_LILLY_AND_COMPANY-US201110001216

PATIENT
  Sex: Female

DRUGS (1)
  1. FORTEO [Suspect]
     Active Substance: TERIPARATIDE
     Indication: OSTEOPOROSIS
     Dosage: 20 UG, QD
     Route: 065
     Dates: start: 20110910

REACTIONS (8)
  - Headache [Recovering/Resolving]
  - Muscle spasms [Recovering/Resolving]
  - Flatulence [Unknown]
  - Dyspepsia [Recovered/Resolved]
  - Myalgia [Unknown]
  - Weight bearing difficulty [Unknown]
  - Eructation [Unknown]
  - Muscular weakness [Recovering/Resolving]
